FAERS Safety Report 7151715-6 (Version None)
Quarter: 2010Q4

REPORT INFORMATION
  Report Type: 
  Country: None (occurrence: None)
  Receive Date: 20101210
  Receipt Date: 20101130
  Transmission Date: 20110411
  Serious: Yes (Other)
  Sender: FDA-Public Use
  Company Number: PHHY2010US81640

PATIENT
  Sex: Female

DRUGS (3)
  1. RECLAST [Suspect]
     Indication: OSTEOPOROSIS
     Dosage: UNK
  2. RECLAST [Suspect]
     Dosage: 5 MG, UNK
     Dates: start: 20100901
  3. LYRICA [Concomitant]

REACTIONS (4)
  - BURNING SENSATION [None]
  - PRURITUS GENERALISED [None]
  - QUALITY OF LIFE DECREASED [None]
  - SKIN EXFOLIATION [None]
